FAERS Safety Report 6663949-5 (Version None)
Quarter: 2010Q2

REPORT INFORMATION
  Report Type: 
  Country: None (occurrence: None)
  Receive Date: 20100401
  Receipt Date: 20100323
  Transmission Date: 20101027
  Serious: Yes (Hospitalization)
  Sender: FDA-Public Use
  Company Number: US-ASTRAZENECA-2010SE13126

PATIENT
  Age: 75 Year
  Sex: Female

DRUGS (4)
  1. PRILOSEC [Suspect]
     Indication: EROSIVE OESOPHAGITIS
     Route: 048
  2. K-DUR [Concomitant]
  3. LEVOTHYROXINE SODIUM [Concomitant]
  4. PROAIR HFA [Concomitant]

REACTIONS (2)
  - DRUG INEFFECTIVE [None]
  - OESOPHAGITIS [None]
